FAERS Safety Report 8558966-4 (Version None)
Quarter: 2012Q3

REPORT INFORMATION
  Report Type: 
  Country: None (occurrence: None)
  Receive Date: 20120802
  Receipt Date: 20120718
  Transmission Date: 20120928
  Serious: Yes (Other)
  Sender: FDA-Public Use
  Company Number: BR-AMGEN-BRASP2012046456

PATIENT
  Age: 65 Year
  Sex: Female
  Weight: 75 kg

DRUGS (9)
  1. PREDNISONE [Concomitant]
     Dosage: UNK
  2. CARISOPRODOL [Concomitant]
     Dosage: UNK
  3. KETOPROFEN [Concomitant]
     Dosage: UNK
  4. ALDACTONE [Concomitant]
     Dosage: UNK
  5. ENBREL [Suspect]
     Indication: RHEUMATOID ARTHRITIS
     Dosage: 50 MG, 1X/WEEK
     Route: 058
     Dates: start: 20110701, end: 20120501
  6. CHLOROQUINE PHOSPHATE [Concomitant]
     Dosage: UNK
  7. NICLOSAMIDE [Concomitant]
     Dosage: UNK
  8. METHOTREXATE [Concomitant]
     Dosage: UNK
  9. RANITIDINE [Concomitant]
     Dosage: UNK

REACTIONS (4)
  - HIP ARTHROPLASTY [None]
  - PAIN [None]
  - JOINT SWELLING [None]
  - DRUG INEFFECTIVE [None]
